FAERS Safety Report 6914932-3 (Version None)
Quarter: 2010Q3

REPORT INFORMATION
  Report Type: 
  Country: None (occurrence: None)
  Receive Date: 20100809
  Receipt Date: 20100802
  Transmission Date: 20110219
  Serious: Yes (Life-Threatening, Disabling)
  Sender: FDA-Public Use
  Company Number: PHHY2009DE55166

PATIENT
  Sex: Female
  Weight: 85 kg

DRUGS (3)
  1. GLEEVEC [Suspect]
     Dosage: 800 MG DAILY
     Route: 048
     Dates: start: 20051028, end: 20091128
  2. LEVOTHYROXINE SODIUM [Concomitant]
     Indication: AUTOIMMUNE THYROIDITIS
     Dosage: 100 MG/DAY
     Route: 048
     Dates: start: 20051025
  3. TRIAMTEREN [Concomitant]
     Indication: HYPERTENSION
     Dosage: 50 MG/DAY
     Route: 048
     Dates: start: 20051025

REACTIONS (5)
  - BLINDNESS [None]
  - CEREBRAL HAEMORRHAGE [None]
  - EYE HAEMORRHAGE [None]
  - INTRACRANIAL ANEURYSM [None]
  - RUPTURED CEREBRAL ANEURYSM [None]
